FAERS Safety Report 9508701 (Version 1)
Quarter: 2013Q1

REPORT INFORMATION
  Report Type: Spontaneous
  Country: US (occurrence: None)
  Receive Date: 20130305
  Receipt Date: 20130305
  Transmission Date: 20140127
  Serious: Yes (Other)
  Sender: FDA-Public Use
  Company Number: 163-21880-12081704

PATIENT
  Age: 45 Year
  Sex: Female

DRUGS (5)
  1. REVLIMID (LENALIDOMIDE) (CAPSULES) [Suspect]
     Indication: PLASMA CELL MYELOMA
     Dosage: 21 IN 21 D
     Route: 048
     Dates: start: 20120611
  2. DEXAMETHASONE (DEXAMETHASONE) (UNKNOWN) [Concomitant]
  3. AREDIA (PAMIDRONATE DISODIUM) (UNKNOWN ) [Concomitant]
  4. NYSTATIN (NYSTATIN) (UNKNOWN ) [Concomitant]
  5. FAMOTIDINE (FAMOTIDNE) UNKNOWN [Concomitant]

REACTIONS (3)
  - Muscle spasms [None]
  - Local swelling [None]
  - Stomatitis [None]
